FAERS Safety Report 5467302-1 (Version None)
Quarter: 2007Q3

REPORT INFORMATION
  Report Type: 
  Country: None (occurrence: None)
  Receive Date: 20070925
  Receipt Date: 20070919
  Transmission Date: 20080115
  Serious: Yes (Hospitalization, Other)
  Sender: FDA-Public Use
  Company Number: US-PFIZER INC-2006146734

PATIENT
  Sex: Female
  Weight: 89.8 kg

DRUGS (9)
  1. CELEBREX [Suspect]
     Indication: PAIN
  2. BEXTRA [Suspect]
     Indication: PAIN
     Dates: start: 20040401
  3. VIOXX [Suspect]
     Indication: ARTHRITIS
     Dosage: TEXT:25MG AND 50MG-FREQ:1-3 TIMES PER DAY PRN
     Dates: start: 20000601, end: 20031001
  4. FENTANYL [Concomitant]
     Indication: PAIN
     Dates: start: 20010101
  5. LORTAB [Concomitant]
  6. FUROSEMIDE [Concomitant]
     Indication: OEDEMA PERIPHERAL
  7. ADVIL LIQUI-GELS [Concomitant]
  8. CYCLOBENZAPRINE HCL [Concomitant]
     Indication: PAIN
  9. MIDRIN [Concomitant]
     Indication: HEADACHE

REACTIONS (1)
  - TRANSIENT ISCHAEMIC ATTACK [None]
